FAERS Safety Report 9155482 (Version 1)
Quarter: 2013Q1

REPORT INFORMATION
  Report Type: Report from Study
  Country: IT (occurrence: IT)
  Receive Date: 20130311
  Receipt Date: 20130311
  Transmission Date: 20140127
  Serious: Yes (Death)
  Sender: FDA-Public Use
  Company Number: IT-PFIZER INC-2013079631

PATIENT
  Age: 59 Year
  Sex: Male

DRUGS (2)
  1. IRINOTECAN HCL [Suspect]
     Indication: COLORECTAL CANCER METASTATIC
     Dosage: UNK
  2. BEVACIZUMAB [Suspect]
     Indication: COLORECTAL CANCER
     Dosage: UNK

REACTIONS (3)
  - Hepatic function abnormal [Fatal]
  - Bile duct necrosis [Fatal]
  - Sepsis [Fatal]
